FAERS Safety Report 21898493 (Version 1)
Quarter: 2023Q1

REPORT INFORMATION
  Report Type: Report from Study
  Country: CA (occurrence: CA)
  Receive Date: 20230123
  Receipt Date: 20230123
  Transmission Date: 20230418
  Serious: Yes (Hospitalization, Other)
  Sender: FDA-Public Use
  Company Number: CA-HLS-202300054

PATIENT
  Age: 63 Year
  Sex: Female

DRUGS (4)
  1. CLOZARIL [Suspect]
     Active Substance: CLOZAPINE
     Indication: Product used for unknown indication
     Dosage: 150MG DAILY
     Route: 048
     Dates: start: 20170614
  2. CLONAZEPAM [Concomitant]
     Active Substance: CLONAZEPAM
     Indication: Product used for unknown indication
     Dosage: 0.5MG EVERY BED TIME ?(WHEN SHE ENTERED THE HOSPITAL LAST WEEK SHE WAS ON 0.5 MG TID, THEY HAVE REDU
     Route: 065
  3. BUPROPION [Concomitant]
     Active Substance: BUPROPION
     Indication: Product used for unknown indication
     Dosage: ?150?MG?BID
     Route: 065
  4. FLUPENTIXOL [Concomitant]
     Active Substance: FLUPENTIXOL
     Indication: Product used for unknown indication
     Dosage: ?60MG?EVERY 3?WEEKS
     Route: 065

REACTIONS (5)
  - Breast cancer metastatic [Unknown]
  - Sedation [Unknown]
  - Sepsis [Unknown]
  - Dysarthria [Unknown]
  - Urosepsis [Unknown]

NARRATIVE: CASE EVENT DATE: 20230107
